FAERS Safety Report 4587212-1 (Version None)
Quarter: 2005Q1

REPORT INFORMATION
  Report Type: 
  Country: None (occurrence: None)
  Receive Date: 20050218
  Receipt Date: 20050214
  Transmission Date: 20050727
  Serious: Yes (Other)
  Sender: FDA-Public Use
  Company Number: US-GLAXOSMITHKLINE-A0545451A

PATIENT
  Age: 15 Year
  Sex: Male

DRUGS (3)
  1. WELLBUTRIN [Suspect]
     Indication: BIPOLAR DISORDER
     Route: 048
     Dates: start: 20031201
  2. ZYPREXA [Concomitant]
  3. DEPAKOTE ER [Concomitant]

REACTIONS (10)
  - AGITATION [None]
  - AMNESIA [None]
  - ANXIETY [None]
  - CONSTIPATION [None]
  - HEADACHE [None]
  - IRRITABILITY [None]
  - MANIA [None]
  - MUSCLE TWITCHING [None]
  - NERVOUSNESS [None]
  - SOMNOLENCE [None]
